FAERS Safety Report 6697911-3 (Version None)
Quarter: 2010Q2

REPORT INFORMATION
  Report Type: 
  Country: None (occurrence: None)
  Receive Date: 20100427
  Receipt Date: 20100419
  Transmission Date: 20101027
  Serious: No
  Sender: FDA-Public Use
  Company Number: US-BIOGENIDEC-2010BI013421

PATIENT
  Sex: Female

DRUGS (3)
  1. TYSABRI [Suspect]
     Indication: MULTIPLE SCLEROSIS
     Route: 042
     Dates: start: 20081013, end: 20090414
  2. TYSABRI [Suspect]
     Route: 042
     Dates: start: 20091218
  3. BOTOX [Concomitant]
     Indication: MUSCULAR WEAKNESS

REACTIONS (1)
  - MUSCULAR WEAKNESS [None]
